FAERS Safety Report 25338650 (Version 1)
Quarter: 2025Q2

REPORT INFORMATION
  Report Type: Spontaneous
  Country: US (occurrence: US)
  Receive Date: 20250520
  Receipt Date: 20250520
  Transmission Date: 20250716
  Serious: No
  Sender: SANOFI AVENTIS
  Company Number: US-SA-2025SA143459

PATIENT
  Sex: Female

DRUGS (7)
  1. DUPIXENT [Suspect]
     Active Substance: DUPILUMAB
     Indication: Dermatitis atopic
     Route: 058
     Dates: start: 202501
  2. FAMOTIDINE [Concomitant]
     Active Substance: FAMOTIDINE
  3. ALBUTEROL [Concomitant]
     Active Substance: ALBUTEROL
  4. BENZONATATE [Concomitant]
     Active Substance: BENZONATATE
  5. ESCITALOPRAM [Concomitant]
     Active Substance: ESCITALOPRAM OXALATE
  6. ALPRAZOLAM [Concomitant]
     Active Substance: ALPRAZOLAM
  7. DESONIDE [Concomitant]
     Active Substance: DESONIDE

REACTIONS (3)
  - Erythema [Unknown]
  - Urticaria [Unknown]
  - Hypersensitivity [Unknown]
